FAERS Safety Report 8514058-1 (Version None)
Quarter: 2012Q3

REPORT INFORMATION
  Report Type: 
  Country: None (occurrence: None)
  Receive Date: 20120717
  Receipt Date: 20120312
  Transmission Date: 20120928
  Serious: Yes (Death, Other)
  Sender: FDA-Public Use
  Company Number: AU-009507513-2012SP013696

PATIENT

DRUGS (8)
  1. CHOLECALCIFEROL [Concomitant]
     Indication: PRODUCT USED FOR UNKNOWN INDICATION
     Dosage: UNK UNK, UNKNOWN
     Route: 065
  2. METFORMIN HYDROCHLORIDE [Concomitant]
     Indication: PRODUCT USED FOR UNKNOWN INDICATION
     Dosage: UNK UNK, UNKNOWN
     Route: 065
  3. COGENTIN [Concomitant]
     Indication: TREMOR
     Dosage: 2 PER DAY-EXTRAPYRAMIDAL SYMPTOMS
     Route: 048
     Dates: start: 20120308
  4. LEVOTHYROXINE SODIUM [Concomitant]
     Indication: PRODUCT USED FOR UNKNOWN INDICATION
     Dosage: UPDATE(14JUN2012) THYROXINE SODIUM
     Route: 065
  5. CITALOPRAM HYDROBROMIDE [Concomitant]
     Indication: PRODUCT USED FOR UNKNOWN INDICATION
     Dosage: UNK UNK, UNKNOWN
     Route: 065
  6. SAPHRIS [Suspect]
     Indication: BIPOLAR I DISORDER
     Dosage: 2 DF, QD
     Route: 060
     Dates: start: 20120215
  7. LITHIUM CARBONATE [Concomitant]
     Indication: PRODUCT USED FOR UNKNOWN INDICATION
     Dosage: UPDATE(14JUN2012) LITHIUM CARBONATE
     Route: 065
  8. NEXIUM [Concomitant]
     Indication: PRODUCT USED FOR UNKNOWN INDICATION
     Dosage: UNK UNK, UNKNOWN
     Route: 065

REACTIONS (5)
  - HYPOAESTHESIA [None]
  - TREMOR [None]
  - INCORRECT ROUTE OF DRUG ADMINISTRATION [None]
  - OFF LABEL USE [None]
  - WRONG TECHNIQUE IN DRUG USAGE PROCESS [None]
